FAERS Safety Report 5497390-8 (Version None)
Quarter: 2007Q4

REPORT INFORMATION
  Report Type: 
  Country: None (occurrence: None)
  Receive Date: 20071025
  Receipt Date: 20070115
  Transmission Date: 20080405
  Serious: No
  Sender: FDA-Public Use
  Company Number: US-BRISTOL-MYERS SQUIBB COMPANY-13646633

PATIENT
  Age: 50 Year
  Sex: Male
  Weight: 102 kg

DRUGS (8)
  1. METFORMIN HCL [Suspect]
     Indication: DIABETES MELLITUS
     Route: 048
     Dates: start: 20061201
  2. AVAPRO [Concomitant]
  3. PREDNISONE [Concomitant]
  4. GLIMEPIRIDE [Concomitant]
  5. VYTORIN [Concomitant]
  6. HYDROCHLOROTHIAZIDE [Concomitant]
  7. AVANDIA [Concomitant]
  8. XOLAIR [Concomitant]

REACTIONS (3)
  - DYSGEUSIA [None]
  - PAROSMIA [None]
  - PHARMACEUTICAL PRODUCT COMPLAINT [None]
